FAERS Safety Report 5158835-6 (Version None)
Quarter: 2006Q4

REPORT INFORMATION
  Report Type: 
  Country: None (occurrence: None)
  Receive Date: 20061128
  Receipt Date: 20061025
  Transmission Date: 20070319
  Serious: Yes (Hospitalization)
  Sender: FDA-Public Use
  Company Number: PL-SANOFI-SYNTHELABO-D01200604949

PATIENT
  Sex: Male
  Weight: 65.5 kg

DRUGS (7)
  1. ZOXON [Concomitant]
  2. PENESTER [Concomitant]
  3. OXALIPLATIN [Suspect]
     Route: 042
     Dates: start: 20061016, end: 20061016
  4. LEUCOVORIN [Suspect]
     Route: 042
     Dates: start: 20061016, end: 20061016
  5. 5-FLUOROURACIL [Suspect]
     Dosage: 400 MG/M?, IV BOLUS D1+D2 FOLLOWED BY 5-FU 2400 MG/M? OVER 46-HOUR CONTINUOUS INFUSION.
     Route: 042
     Dates: start: 20061016, end: 20061018
  6. SR57746 OR PLACEBO [Suspect]
     Indication: NEUROLOGICAL SYMPTOM
     Route: 048
     Dates: start: 20060707, end: 20061020
  7. BETASERC [Concomitant]

REACTIONS (4)
  - ABDOMINAL ADHESIONS [None]
  - DIARRHOEA [None]
  - GENERAL PHYSICAL HEALTH DETERIORATION [None]
  - MECHANICAL ILEUS [None]
